FAERS Safety Report 24032264 (Version 1)
Quarter: 2024Q2

REPORT INFORMATION
  Report Type: Report from Study
  Country: ZA (occurrence: ZA)
  Receive Date: 20240630
  Receipt Date: 20240630
  Transmission Date: 20240716
  Serious: Yes (Death)
  Sender: FDA-Public Use
  Company Number: ZA-ABBOTT-2024A-1383416

PATIENT
  Age: 59 Year
  Sex: Male

DRUGS (10)
  1. FENOFIBRATE [Suspect]
     Active Substance: FENOFIBRATE
     Indication: Blood cholesterol
     Dosage: 200 MG TAKE 1 CAPSULE AT NIGHT
     Route: 048
  2. CELEBREX [Concomitant]
     Active Substance: CELECOXIB
     Indication: Pain
     Dosage: 200 MG TAKE 1 CAPSULE TWICE A DAY
     Route: 048
  3. ATORVASTATIN [Concomitant]
     Active Substance: ATORVASTATIN
     Indication: Blood cholesterol
     Dosage: 40 MG TAKE ONE TABLET AT NIGHT?ATORVASTATIN CALCIUM TRIHYDRATE
     Route: 048
  4. ESCITALOPRAM [Concomitant]
     Active Substance: ESCITALOPRAM OXALATE
     Indication: Depression
     Dosage: 10 MG TAKE 1 TABLET DAILY
     Route: 048
  5. MIRTAZAPINE [Concomitant]
     Active Substance: MIRTAZAPINE
     Indication: Depression
     Dosage: 30 MG TAKE 1 TABLET DAILY
     Route: 048
  6. DIisprin Cardiocare [Concomitant]
     Indication: Blood disorder prophylaxis
     Dosage: 100 MG TAKE 1 TABLET AT NIGHT?100,00MG
     Route: 048
  7. FUROSEMIDE [Concomitant]
     Active Substance: FUROSEMIDE
     Indication: Hypertension
     Dosage: 40 MG TAKE 1 TABLET DAILY
     Route: 048
  8. SOTALOL [Concomitant]
     Active Substance: SOTALOL
     Indication: Hypertension
     Dosage: 80 MG TAKE 1 TABLET TWICE DAILY
     Route: 048
  9. PAINAMOL [Concomitant]
     Indication: Product used for unknown indication
     Dosage: 500 MG TAKE 2 THREE TIMES PER DAY?GREEN
     Route: 048
  10. ATORVASTATIN CALCIUM [Concomitant]
     Active Substance: ATORVASTATIN CALCIUM
     Indication: Blood cholesterol
     Dosage: 40 MG TAKE 1 TABLET AT NIGHT
     Route: 048

REACTIONS (1)
  - Death [Fatal]

NARRATIVE: CASE EVENT DATE: 20240507
